FAERS Safety Report 6818961-X (Version None)
Quarter: 2010Q3

REPORT INFORMATION
  Report Type: 
  Country: None (occurrence: None)
  Receive Date: 20100707
  Receipt Date: 20100217
  Transmission Date: 20110219
  Serious: Yes (Other)
  Sender: FDA-Public Use
  Company Number: US-ASTRAZENECA-2008UW27404

PATIENT
  Age: 52 Year
  Sex: Female
  Weight: 125.2 kg

DRUGS (5)
  1. SEROQUEL [Suspect]
     Indication: MENTAL DISORDER
     Route: 048
     Dates: start: 20021203
  2. CLONAZEPAM [Concomitant]
     Route: 048
     Dates: start: 20011030
  3. ALPRAZOLAM [Concomitant]
     Dates: start: 20011115
  4. SERZONE [Concomitant]
     Dates: start: 20011108
  5. DEPAKOTE [Concomitant]
     Dates: start: 20020207

REACTIONS (2)
  - DIABETIC NEUROPATHY [None]
  - TYPE 2 DIABETES MELLITUS [None]
